FAERS Safety Report 11202893 (Version 1)
Quarter: 2015Q2

REPORT INFORMATION
  Report Type: Spontaneous
  Country: US (occurrence: US)
  Receive Date: 20150619
  Receipt Date: 20150619
  Transmission Date: 20150821
  Serious: Yes (Other)
  Sender: FDA-Public Use
  Company Number: US-SHIRE-US201506198

PATIENT
  Age: 2 Year

DRUGS (1)
  1. VYVANSE [Suspect]
     Active Substance: LISDEXAMFETAMINE DIMESYLATE
     Indication: ACCIDENTAL EXPOSURE TO PRODUCT BY CHILD
     Dosage: 150 MG (THREE - 50 MG), ONE DOSE
     Route: 048

REACTIONS (9)
  - Confusional state [Unknown]
  - Sympathomimetic effect [Unknown]
  - Hypertension [Unknown]
  - Accidental overdose [Unknown]
  - Agitation [Unknown]
  - Tachycardia [Unknown]
  - Mydriasis [Unknown]
  - Accidental exposure to product by child [Unknown]
  - Psychomotor hyperactivity [Unknown]
